FAERS Safety Report 8851332 (Version 1)
Quarter: 2012Q4

REPORT INFORMATION
  Report Type: 
  Country: US (occurrence: US)
  Receive Date: 20121022
  Receipt Date: 20121022
  Transmission Date: 20130627
  Serious: No
  Sender: FDA-Public Use
  Company Number: US-009507513-1210USA007449

PATIENT
  Age: 4 Year
  Sex: Female

DRUGS (2)
  1. SINGULAIR [Suspect]
     Indication: HYPERSENSITIVITY
     Dosage: UNK
     Route: 048
     Dates: end: 20121012
  2. CETIRIZINE HYDROCHLORIDE [Concomitant]

REACTIONS (1)
  - Lactose intolerance [Not Recovered/Not Resolved]
